FAERS Safety Report 21209796 (Version 5)
Quarter: 2022Q4

REPORT INFORMATION
  Report Type: Report from Study
  Country: GB (occurrence: GB)
  Receive Date: 20220813
  Receipt Date: 20221229
  Transmission Date: 20230113
  Serious: Yes (Hospitalization, Other)
  Sender: FDA-Public Use
  Company Number: GB-NOVARTISPH-PHHY2013GB127236

PATIENT
  Age: 61 Year
  Sex: Female
  Weight: 61.6 kg

DRUGS (40)
  1. DOCETAXEL [Suspect]
     Active Substance: DOCETAXEL
     Indication: Breast cancer
     Dosage: UNK
     Route: 065
     Dates: start: 20120817
  2. DOCETAXEL [Suspect]
     Active Substance: DOCETAXEL
     Dosage: 120 MG
     Route: 065
     Dates: start: 20120817, end: 2012
  3. DOCETAXEL [Suspect]
     Active Substance: DOCETAXEL
     Dosage: 80 MG (INITIATED ON 12 OCT 2012)
     Route: 065
     Dates: start: 20121012
  4. DOCETAXEL [Suspect]
     Active Substance: DOCETAXEL
     Dosage: 120 MG
     Route: 065
     Dates: start: 20121210
  5. DOCETAXEL [Suspect]
     Active Substance: DOCETAXEL
     Dosage: UNK
     Route: 065
     Dates: start: 20121210
  6. DOCETAXEL [Suspect]
     Active Substance: DOCETAXEL
     Dosage: UNK
     Route: 065
     Dates: start: 20121012
  7. DOCETAXEL [Suspect]
     Active Substance: DOCETAXEL
     Dosage: 120 MG (120 MILLIGRAM)
     Route: 065
     Dates: start: 20120817, end: 2012
  8. METFORMIN [Suspect]
     Active Substance: METFORMIN HYDROCHLORIDE
     Indication: Product used for unknown indication
     Dosage: 2 G
     Route: 048
  9. METFORMIN [Suspect]
     Active Substance: METFORMIN HYDROCHLORIDE
     Dosage: 2 G
     Route: 050
  10. METFORMIN HYDROCHLORIDE [Suspect]
     Active Substance: METFORMIN HYDROCHLORIDE
     Indication: Product used for unknown indication
     Dosage: 2 G
     Route: 065
  11. CARBOPLATIN [Suspect]
     Active Substance: CARBOPLATIN
     Indication: Breast cancer
     Dosage: 750 MG
     Route: 065
     Dates: start: 20120817
  12. CARBOPLATIN [Suspect]
     Active Substance: CARBOPLATIN
     Dosage: UNK
     Route: 065
     Dates: start: 20120817
  13. CARBOPLATIN [Suspect]
     Active Substance: CARBOPLATIN
     Dosage: 500 MG (INITIATED 12 OCT 2012)
     Route: 065
     Dates: start: 20121012
  14. UNSPECIFIED INGREDIENT [Suspect]
     Active Substance: UNSPECIFIED INGREDIENT
     Indication: Product used for unknown indication
     Dosage: UNK
     Route: 065
  15. TRASTUZUMAB [Suspect]
     Active Substance: TRASTUZUMAB
     Indication: Breast cancer
     Dosage: 546 MG
     Route: 041
     Dates: start: 20120817
  16. TRASTUZUMAB [Suspect]
     Active Substance: TRASTUZUMAB
     Dosage: 546 MG (INTRAVENOUS INFUSION, INTRAVENOUS DRIP)
     Route: 050
     Dates: start: 20120817
  17. TRASTUZUMAB [Suspect]
     Active Substance: TRASTUZUMAB
     Dosage: 420 MG
     Route: 050
     Dates: start: 20120817
  18. TRASTUZUMAB [Suspect]
     Active Substance: TRASTUZUMAB
     Dosage: 420 MG
     Route: 042
     Dates: start: 20121012
  19. TRASTUZUMAB [Suspect]
     Active Substance: TRASTUZUMAB
     Dosage: 420 MG (INITIATED 12 OCT 2012)
     Route: 050
     Dates: start: 20121012
  20. PERTUZUMAB [Suspect]
     Active Substance: PERTUZUMAB
     Indication: Breast cancer
     Dosage: 1 MG, Q3W (DATE OF LAST DOSE PRIOR TO SAE: 12/OCT/2012)
     Route: 050
     Dates: start: 20120817, end: 20121012
  21. PERTUZUMAB [Suspect]
     Active Substance: PERTUZUMAB
     Dosage: 1 MG, TIW (DATE OF LAST DOSE PRIOR TO SAE: 12 OCT 2012)
     Route: 042
     Dates: start: 20120817
  22. PERTUZUMAB [Suspect]
     Active Substance: PERTUZUMAB
     Dosage: 546 MG
     Route: 042
     Dates: start: 20120817
  23. PERTUZUMAB [Suspect]
     Active Substance: PERTUZUMAB
     Dosage: UNK (DOSE FORM: 124)
     Route: 058
     Dates: start: 20120817
  24. PERTUZUMAB [Suspect]
     Active Substance: PERTUZUMAB
     Dosage: UNK
     Route: 050
     Dates: start: 20121012
  25. PERTUZUMAB [Suspect]
     Active Substance: PERTUZUMAB
     Dosage: 420 MG
     Route: 065
     Dates: start: 20121012
  26. PERTUZUMAB [Suspect]
     Active Substance: PERTUZUMAB
     Dosage: UNK (DOSE FORM:230)
     Route: 065
     Dates: start: 20120817
  27. ONDANSETRON [Concomitant]
     Active Substance: ONDANSETRON
     Indication: Product used for unknown indication
     Dosage: UNK (BOLUS)
     Route: 050
     Dates: start: 20120817, end: 20120821
  28. ONDANSETRON [Concomitant]
     Active Substance: ONDANSETRON
     Dosage: UNK
     Route: 050
     Dates: start: 20120914, end: 20120918
  29. ONDANSETRON [Concomitant]
     Active Substance: ONDANSETRON
     Dosage: 6 MG (4-6 MG)
     Route: 050
     Dates: start: 20121012, end: 20121018
  30. ONDANSETRON [Concomitant]
     Active Substance: ONDANSETRON
     Dosage: UNK
     Route: 065
     Dates: start: 20120914, end: 20120919
  31. METOCLOPRAMIDE [Concomitant]
     Active Substance: METOCLOPRAMIDE
     Indication: Product used for unknown indication
     Dosage: 80 MG (40-80 MG)
     Route: 065
     Dates: start: 20120914, end: 20120920
  32. FILGRASTIM [Concomitant]
     Active Substance: FILGRASTIM
     Indication: Product used for unknown indication
     Dosage: UNK
     Route: 065
     Dates: start: 20120818, end: 20120823
  33. FILGRASTIM [Concomitant]
     Active Substance: FILGRASTIM
     Dosage: UNK
     Route: 065
     Dates: start: 20120914, end: 20120920
  34. FILGRASTIM [Concomitant]
     Active Substance: FILGRASTIM
     Dosage: UNK
     Route: 065
     Dates: start: 20121012, end: 20121019
  35. DEXAMETHASONE [Concomitant]
     Active Substance: DEXAMETHASONE
     Indication: Product used for unknown indication
     Dosage: UNK
     Route: 065
     Dates: start: 20120816, end: 20120818
  36. CHLORPHENIRAMINE MALEATE [Concomitant]
     Active Substance: CHLORPHENIRAMINE MALEATE
     Indication: Product used for unknown indication
     Dosage: UNK (BOLUS)
     Route: 050
     Dates: start: 20120817
  37. RANITIDINE [Concomitant]
     Active Substance: RANITIDINE
     Indication: Product used for unknown indication
     Dosage: UNK (BOLUS)
     Route: 050
     Dates: start: 20120817
  38. GLICLAZIDE [Concomitant]
     Active Substance: GLICLAZIDE
     Indication: Product used for unknown indication
     Dosage: UNK
     Route: 065
  39. SIMVASTATIN [Concomitant]
     Active Substance: SIMVASTATIN
     Indication: Product used for unknown indication
     Dosage: UNK
     Route: 065
  40. CALCIUM\CHOLECALCIFEROL [Concomitant]
     Active Substance: CALCIUM\CHOLECALCIFEROL
     Indication: Product used for unknown indication
     Dosage: UNK
     Route: 065
     Dates: start: 20120817

REACTIONS (6)
  - Diarrhoea [Recovered/Resolved]
  - Diarrhoea [Recovered/Resolved]
  - Nausea [Recovering/Resolving]
  - Vomiting [Recovering/Resolving]
  - Off label use [Unknown]
  - Off label use [Unknown]

NARRATIVE: CASE EVENT DATE: 20120817
